FAERS Safety Report 6173850-1 (Version None)
Quarter: 2009Q2

REPORT INFORMATION
  Report Type: 
  Country: None (occurrence: None)
  Receive Date: 20090429
  Receipt Date: 20090429
  Transmission Date: 20091009
  Serious: Yes (Hospitalization)
  Sender: FDA-Public Use
  Company Number: None

PATIENT
  Age: 68 Year
  Sex: Female
  Weight: 78.9259 kg

DRUGS (3)
  1. AVANDAMET [Suspect]
     Dosage: 1 PO BID
     Route: 048
  2. METFORMIN HCL [Suspect]
     Dosage: 1 PO QD
     Route: 048
  3. ACTOS [Concomitant]

REACTIONS (4)
  - ABDOMINAL PAIN [None]
  - ABDOMINAL PAIN UPPER [None]
  - NAUSEA [None]
  - VOMITING [None]
